FAERS Safety Report 23913909 (Version 3)
Quarter: 2024Q3

REPORT INFORMATION
  Report Type: Report from Study
  Country: US (occurrence: US)
  Receive Date: 20240529
  Receipt Date: 20240821
  Transmission Date: 20241016
  Serious: Yes (Hospitalization)
  Sender: NOVARTIS
  Company Number: US-002147023-NVSC2024US111142

PATIENT
  Sex: Female

DRUGS (1)
  1. KESIMPTA [Suspect]
     Active Substance: OFATUMUMAB
     Indication: Product used for unknown indication
     Dosage: 20 MG
     Route: 065
     Dates: start: 202402

REACTIONS (9)
  - Sinusitis [Recovering/Resolving]
  - Urticaria [Recovering/Resolving]
  - Ear pain [Recovering/Resolving]
  - Blindness [Recovering/Resolving]
  - Optic neuritis [Recovering/Resolving]
  - Condition aggravated [Recovering/Resolving]
  - Papule [Recovering/Resolving]
  - Viral infection [Recovering/Resolving]
  - Muscular weakness [Unknown]
